FAERS Safety Report 25257541 (Version 2)
Quarter: 2025Q2

REPORT INFORMATION
  Report Type: Spontaneous
  Country: CN (occurrence: CN)
  Receive Date: 20250430
  Receipt Date: 20250509
  Transmission Date: 20250716
  Serious: Yes (Hospitalization)
  Sender: NOVARTIS
  Company Number: CN-002147023-NVSC2025CN068793

PATIENT
  Age: 16 Year
  Sex: Female

DRUGS (1)
  1. CARBAMAZEPINE [Suspect]
     Active Substance: CARBAMAZEPINE
     Indication: Epilepsy
     Dosage: 1 DOSAGE FORM, BID
     Route: 048
     Dates: start: 20250320, end: 20250412

REACTIONS (7)
  - Drug hypersensitivity [Recovering/Resolving]
  - Macule [Recovering/Resolving]
  - Pruritus [Recovering/Resolving]
  - Papule [Recovering/Resolving]
  - Hepatic function abnormal [Recovering/Resolving]
  - Rash erythematous [Unknown]
  - Pyrexia [Recovered/Resolved]

NARRATIVE: CASE EVENT DATE: 20250410
